FAERS Safety Report 9889062 (Version 3)
Quarter: 2014Q3

REPORT INFORMATION
  Report Type: Spontaneous
  Country: US (occurrence: None)
  Receive Date: 20140207
  Receipt Date: 20140804
  Transmission Date: 20150326
  Serious: Yes (Hospitalization, Other)
  Sender: FDA-Public Use
  Company Number: 2014US000718

PATIENT
  Sex: Female
  Weight: 48.5 kg

DRUGS (9)
  1. RANITIDINE [Concomitant]
     Active Substance: RANITIDINE\RANITIDINE HYDROCHLORIDE
  2. NEURONTIN [Concomitant]
     Active Substance: GABAPENTIN
  3. OXYGEN (OXYGEN) [Concomitant]
     Active Substance: OXYGEN
  4. DUONEBS (DUONEBS) [Concomitant]
  5. GLASSIA [Suspect]
     Active Substance: .ALPHA.1-PROTEINASE INHIBITOR HUMAN
     Indication: PRODUCT USED FOR UNKNOWN INDICATION
     Route: 042
  6. METOPROLOL (METOPROLOL) [Concomitant]
     Active Substance: METOPROLOL
  7. LEXAPRO /01588502/ (ESCITALOPRAM OXALATE) [Concomitant]
  8. NITROGLYCERIN (GLYCERYL TRINITRATE) [Concomitant]
  9. NORVASC [Concomitant]
     Active Substance: AMLODIPINE BESYLATE

REACTIONS (6)
  - Panic attack [None]
  - Chronic obstructive pulmonary disease [None]
  - Endometriosis [None]
  - Muscle atrophy [None]
  - Weight decreased [None]
  - Anxiety [None]

NARRATIVE: CASE EVENT DATE: 2013
